FAERS Safety Report 10266786 (Version 1)
Quarter: 2014Q2

REPORT INFORMATION
  Report Type: Spontaneous
  Country: US (occurrence: US)
  Receive Date: 20140630
  Receipt Date: 20140630
  Transmission Date: 20141212
  Serious: Yes (Hospitalization, Other)
  Sender: FDA-Public Use
  Company Number: US-AMGEN-USASP2014047679

PATIENT
  Age: 51 Year
  Sex: Female

DRUGS (5)
  1. NEULASTA [Suspect]
     Indication: PRODUCT USED FOR UNKNOWN INDICATION
     Dosage: UNK UNK, AFTER CHEMO
     Route: 065
  2. TAXOTERE [Concomitant]
     Indication: BREAST CANCER
     Dosage: UNK
     Dates: start: 20140416
  3. CIMOXEN                            /00697202/ [Concomitant]
     Dosage: UNK
  4. ALPRAZOLAM [Concomitant]
     Dosage: UNK
  5. PEPCID                             /00706001/ [Concomitant]
     Dosage: UNK

REACTIONS (16)
  - Adverse reaction [Unknown]
  - Dyspnoea [Unknown]
  - Wheezing [Unknown]
  - Rash generalised [Recovered/Resolved]
  - Urticaria [Unknown]
  - Musculoskeletal pain [Unknown]
  - Chest pain [Unknown]
  - Chest discomfort [Unknown]
  - Formication [Unknown]
  - Hypoaesthesia [Unknown]
  - Eye swelling [Unknown]
  - Lip swelling [Unknown]
  - Oedema mouth [Unknown]
  - Tongue disorder [Unknown]
  - Jaw disorder [Unknown]
  - Erythema [Recovered/Resolved]
